FAERS Safety Report 6259182-1 (Version None)
Quarter: 2009Q3

REPORT INFORMATION
  Report Type: 
  Country: None (occurrence: None)
  Receive Date: 20090702
  Receipt Date: 20090617
  Transmission Date: 20100115
  Serious: Yes (Other)
  Sender: FDA-Public Use
  Company Number: 2009AL000346

PATIENT
  Age: 55 Year
  Sex: Male

DRUGS (16)
  1. DIGOXIN [Suspect]
     Indication: CARDIAC FAILURE CONGESTIVE
     Dosage: 0.125MG, DAILY, PO
     Route: 048
  2. AMIODARONE HCL [Concomitant]
  3. AMLODIPINE [Concomitant]
  4. BUPROPIN [Concomitant]
  5. CARVEDILOL [Concomitant]
  6. ENDOCET [Concomitant]
  7. FLEXERIL [Concomitant]
  8. LASIX [Concomitant]
  9. LISINOPRIL [Concomitant]
  10. MIRAPEX [Concomitant]
  11. POTASSIUM CHLORIDE [Concomitant]
  12. SPIRIVA [Concomitant]
  13. VIAGRA [Concomitant]
  14. WARFARIN SODIUM [Concomitant]
  15. XANAX [Concomitant]
  16. ZAROXOLYN [Concomitant]

REACTIONS (7)
  - CHEST DISCOMFORT [None]
  - COLD SWEAT [None]
  - HEART RATE IRREGULAR [None]
  - MALAISE [None]
  - PALPITATIONS [None]
  - THERAPEUTIC AGENT TOXICITY [None]
  - VISUAL IMPAIRMENT [None]
